FAERS Safety Report 17709412 (Version 1)
Quarter: 2020Q2

REPORT INFORMATION
  Report Type: Spontaneous
  Country: US (occurrence: US)
  Receive Date: 20200427
  Receipt Date: 20200427
  Transmission Date: 20200714
  Serious: No
  Sender: FDA-Public Use
  Company Number: US-APOTEX-2020AP009961

PATIENT
  Age: 60 Year
  Sex: Male

DRUGS (2)
  1. OMEPRAZOLE DELAYED -RELEASE CAPSULES [Suspect]
     Active Substance: OMEPRAZOLE
     Indication: PRODUCT USED FOR UNKNOWN INDICATION
     Dosage: 1 DF, QD
     Route: 065
  2. OMEPRAZOLE  DELAYED -RELEASE CAPSULES [Suspect]
     Active Substance: OMEPRAZOLE
     Dosage: UNK UNK, PRN
     Route: 065

REACTIONS (4)
  - Pruritus [Unknown]
  - Skin haemorrhage [Not Recovered/Not Resolved]
  - Abdominal discomfort [Unknown]
  - Paraesthesia [Unknown]
